FAERS Safety Report 7397570-0 (Version None)
Quarter: 2011Q2

REPORT INFORMATION
  Report Type: 
  Country: None (occurrence: None)
  Receive Date: 20110401
  Receipt Date: 20110401
  Transmission Date: 20111010
  Serious: No
  Sender: FDA-Public Use
  Company Number: None

PATIENT
  Sex: Female
  Weight: 65.7716 kg

DRUGS (3)
  1. FLECTOR PATCH 1.3% (DICLOFENAC EPALAMINE TOPICAL PATCH [Suspect]
     Indication: PAIN
     Dosage: 1 PATCH PER DAY
     Dates: start: 20110224
  2. FLECTOR PATCH 1.3% (DICLOFENAC EPALAMINE TOPICAL PATCH [Suspect]
     Indication: PAIN
     Dosage: 1 PATCH PER DAY
     Dates: start: 20110225
  3. FLECTOR PATCH 1.3% (DICLOFENAC EPALAMINE TOPICAL PATCH [Suspect]
     Indication: PAIN
     Dosage: 1 PATCH PER DAY
     Dates: start: 20110223

REACTIONS (4)
  - THINKING ABNORMAL [None]
  - URTICARIA [None]
  - ARTHRALGIA [None]
  - DYSARTHRIA [None]
